FAERS Safety Report 10176815 (Version 3)
Quarter: 2014Q3

REPORT INFORMATION
  Report Type: Spontaneous
  Country: US (occurrence: US)
  Receive Date: 20140516
  Receipt Date: 20140717
  Transmission Date: 20150326
  Serious: Yes (Hospitalization, Disabling, Other)
  Sender: FDA-Public Use
  Company Number: US-BAYER-2014-072802

PATIENT
  Age: 32 Year
  Sex: Female
  Weight: 70.75 kg

DRUGS (1)
  1. MIRENA [Suspect]
     Active Substance: LEVONORGESTREL
     Dosage: 20 MCG/24HR, CONT
     Route: 015
     Dates: start: 20111114, end: 20130212

REACTIONS (14)
  - Injury [None]
  - Drug ineffective [None]
  - Emotional distress [None]
  - Depression [None]
  - Device issue [None]
  - Uterine perforation [None]
  - Feeling guilty [None]
  - Pain [None]
  - Anhedonia [None]
  - Ectopic pregnancy with contraceptive device [None]
  - Depressed mood [None]
  - Confusional state [None]
  - General physical health deterioration [None]
  - Sensory loss [None]

NARRATIVE: CASE EVENT DATE: 201301
